FAERS Safety Report 10025590 (Version 1)
Quarter: 2014Q1

REPORT INFORMATION
  Report Type: Spontaneous
  Country: DE (occurrence: DE)
  Receive Date: 20140320
  Receipt Date: 20140320
  Transmission Date: 20141002
  Serious: Yes (Hospitalization)
  Sender: FDA-Public Use
  Company Number: DE-ACTAVIS-2014-04975

PATIENT
  Age: 46 Year
  Sex: Female
  Weight: 58 kg

DRUGS (1)
  1. PACLITAXEL ACTAVIS [Suspect]
     Indication: FALLOPIAN TUBE CANCER
     Dosage: 280 MG, DAILY
     Route: 042
     Dates: start: 20140221

REACTIONS (1)
  - Hypersensitivity [Recovered/Resolved]
